FAERS Safety Report 7501225-9 (Version None)
Quarter: 2011Q2

REPORT INFORMATION
  Report Type: 
  Country: None (occurrence: None)
  Receive Date: 20110524
  Receipt Date: 20110511
  Transmission Date: 20111010
  Serious: Yes (Other)
  Sender: FDA-Public Use
  Company Number: DE-UCBSA-032645

PATIENT
  Sex: Male

DRUGS (2)
  1. KEPPRA [Suspect]
  2. CHEMOTHERAPY [Concomitant]

REACTIONS (1)
  - LIVER DISORDER [None]
